APPROVED DRUG PRODUCT: TRIAMCINOLONE ACETONIDE
Active Ingredient: TRIAMCINOLONE ACETONIDE
Strength: 40MG/ML
Dosage Form/Route: INJECTABLE;INJECTION
Application: A090164 | Product #001
Applicant: SANDOZ INC
Approved: Jun 1, 2009 | RLD: No | RS: No | Type: DISCN